FAERS Safety Report 20484621 (Version 3)
Quarter: 2023Q4

REPORT INFORMATION
  Report Type: Other
  Country: DK (occurrence: DK)
  Receive Date: 20220217
  Receipt Date: 20231005
  Transmission Date: 20240109
  Serious: Yes (Hospitalization)
  Sender: FDA-Public Use
  Company Number: DK-ASTELLAS-2021US044669

PATIENT
  Age: 44 Year
  Sex: Female
  Weight: 58.6 kg

DRUGS (32)
  1. RITUXIMAB [Suspect]
     Active Substance: RITUXIMAB
     Indication: Follicular lymphoma stage IV
     Dosage: C1D1
     Route: 042
     Dates: start: 20211025
  2. BENDAMUSTINE [Suspect]
     Active Substance: BENDAMUSTINE
     Indication: Follicular lymphoma stage IV
     Dosage: ON 26/OCT/2021, SHE RECEIVED MOST RECENT DOSE OF BENDAMUSTINE HYDROCHLORIDE.?C1D1, 90 MILLIGRAM/SQ.
     Route: 042
     Dates: start: 20211025
  3. EPCORITAMAB [Suspect]
     Active Substance: EPCORITAMAB
     Indication: Follicular lymphoma stage IV
     Dosage: [SINGLE (FULL DOSE)]?C1D15
     Route: 058
     Dates: start: 20211109, end: 20211109
  4. EPCORITAMAB [Suspect]
     Active Substance: EPCORITAMAB
     Dosage: [SINGLE (FULL DOSE)]?C1D22
     Route: 058
     Dates: start: 20211123
  5. EPCORITAMAB [Suspect]
     Active Substance: EPCORITAMAB
     Dosage: SINGLE (INTERMEDIATE)?C1D8
     Route: 058
     Dates: start: 20211102, end: 20211102
  6. EPCORITAMAB [Suspect]
     Active Substance: EPCORITAMAB
     Dosage: SINGLE (PRIMING), C1D1?CONCENTRATE FOR SOLUTION FOR INJECTION
     Route: 058
     Dates: start: 20211026, end: 20211026
  7. FLUCONAZOLE [Concomitant]
     Active Substance: FLUCONAZOLE
     Indication: Product used for unknown indication
     Route: 065
     Dates: start: 20211116
  8. METOCLOPRAMIDE [Concomitant]
     Active Substance: METOCLOPRAMIDE
     Dates: start: 20211117, end: 20211221
  9. CALCIUM CARBONATE [Concomitant]
     Active Substance: CALCIUM CARBONATE
     Dates: start: 20211026
  10. BISACODYL [Concomitant]
     Active Substance: BISACODYL
     Indication: Product used for unknown indication
     Route: 065
     Dates: start: 20211116
  11. ACYCLOVIR [Concomitant]
     Active Substance: ACYCLOVIR
     Indication: Product used for unknown indication
     Route: 065
     Dates: start: 20211115, end: 20211130
  12. CETIRIZINE HYDROCHLORIDE [Concomitant]
     Active Substance: CETIRIZINE HYDROCHLORIDE
     Indication: Product used for unknown indication
     Route: 048
     Dates: start: 20211102
  13. CETIRIZINE HYDROCHLORIDE [Concomitant]
     Active Substance: CETIRIZINE HYDROCHLORIDE
     Route: 048
     Dates: start: 20211025
  14. CETIRIZINE HYDROCHLORIDE [Concomitant]
     Active Substance: CETIRIZINE HYDROCHLORIDE
     Route: 048
     Dates: start: 20211109
  15. CETIRIZINE HYDROCHLORIDE [Concomitant]
     Active Substance: CETIRIZINE HYDROCHLORIDE
     Route: 048
     Dates: start: 20211123
  16. CETIRIZINE HYDROCHLORIDE [Concomitant]
     Active Substance: CETIRIZINE HYDROCHLORIDE
     Route: 048
     Dates: start: 20211026
  17. ACETAMINOPHEN [Concomitant]
     Active Substance: ACETAMINOPHEN
     Indication: Product used for unknown indication
     Route: 048
     Dates: start: 20211123
  18. ACETAMINOPHEN [Concomitant]
     Active Substance: ACETAMINOPHEN
     Route: 048
     Dates: start: 20211109
  19. ACETAMINOPHEN [Concomitant]
     Active Substance: ACETAMINOPHEN
     Route: 048
     Dates: start: 20211025
  20. ACETAMINOPHEN [Concomitant]
     Active Substance: ACETAMINOPHEN
     Route: 048
     Dates: start: 20211102
  21. ONDANSETRON [Concomitant]
     Active Substance: ONDANSETRON
     Indication: Product used for unknown indication
     Route: 065
     Dates: start: 20211025, end: 20211026
  22. SOLU-MEDROL [Concomitant]
     Active Substance: METHYLPREDNISOLONE SODIUM SUCCINATE
     Indication: Product used for unknown indication
     Route: 065
     Dates: start: 20211025, end: 20211025
  23. SOLU-MEDROL [Concomitant]
     Active Substance: METHYLPREDNISOLONE SODIUM SUCCINATE
     Route: 042
     Dates: start: 20211025, end: 20211112
  24. ZOPICLONE [Concomitant]
     Active Substance: ZOPICLONE
     Indication: Product used for unknown indication
     Route: 065
     Dates: start: 20211113
  25. BIOCLAVID [Concomitant]
     Active Substance: AMOXICILLIN\CLAVULANIC ACID
     Indication: Product used for unknown indication
     Route: 065
     Dates: start: 20211111, end: 20211123
  26. PREDNISOLONE [Concomitant]
     Active Substance: PREDNISOLONE
     Indication: Product used for unknown indication
     Route: 048
     Dates: start: 20211123, end: 20211126
  27. SODIUM CHLORIDE [Concomitant]
     Active Substance: SODIUM CHLORIDE
     Indication: Product used for unknown indication
     Route: 065
     Dates: start: 20211025, end: 20211025
  28. ALBUTEROL [Concomitant]
     Active Substance: ALBUTEROL
     Indication: Product used for unknown indication
     Route: 065
     Dates: start: 20211025
  29. SODIUM PICOSULFATE [Concomitant]
     Active Substance: SODIUM PICOSULFATE
     Dates: start: 20211115, end: 20211221
  30. UNIKALK BASIC [Concomitant]
     Indication: Product used for unknown indication
     Route: 065
     Dates: start: 20211026
  31. SODIUM PICOSULFATE [Concomitant]
     Active Substance: SODIUM PICOSULFATE
     Indication: Product used for unknown indication
     Route: 065
     Dates: start: 20211115
  32. GANGIDEN [Concomitant]
     Indication: Product used for unknown indication
     Route: 065
     Dates: start: 20211113

REACTIONS (2)
  - Cholecystitis infective [Recovered/Resolved]
  - Cytokine release syndrome [Recovered/Resolved]

NARRATIVE: CASE EVENT DATE: 20211110
